FAERS Safety Report 11969984 (Version 1)
Quarter: 2016Q1

REPORT INFORMATION
  Report Type: Report from Study
  Country: CA (occurrence: CA)
  Receive Date: 20160128
  Receipt Date: 20160128
  Transmission Date: 20160526
  Serious: Yes (Hospitalization)
  Sender: FDA-Public Use
  Company Number: CA-JNJFOC-20160116950

PATIENT
  Age: 71 Year
  Sex: Female

DRUGS (1)
  1. SIMPONI [Suspect]
     Active Substance: GOLIMUMAB
     Indication: RHEUMATOID ARTHRITIS
     Dosage: 2 MG/KG FOR 0, 4 THEN ONCE 8 WEEKS
     Route: 058
     Dates: start: 20151215

REACTIONS (4)
  - Transfusion [Unknown]
  - Urticaria [Unknown]
  - Intestinal haemorrhage [Unknown]
  - Rash [Not Recovered/Not Resolved]

NARRATIVE: CASE EVENT DATE: 201512
